FAERS Safety Report 9689911 (Version 1)
Quarter: 2013Q4

REPORT INFORMATION
  Report Type: Spontaneous
  Country: US (occurrence: US)
  Receive Date: 20131115
  Receipt Date: 20131115
  Transmission Date: 20140711
  Serious: No
  Sender: FDA-Public Use
  Company Number: US-PFIZER INC-2013325963

PATIENT
  Age: 34 Year
  Sex: Female
  Weight: 58.96 kg

DRUGS (2)
  1. CHANTIX [Suspect]
     Indication: SMOKING CESSATION THERAPY
     Dosage: UNK
     Route: 048
     Dates: start: 2013, end: 2013
  2. CHANTIX [Suspect]
     Dosage: UNK (HALF OF 1MG) , 2X/DAY
     Route: 048
     Dates: start: 20131109

REACTIONS (4)
  - Chest discomfort [Unknown]
  - Nausea [Unknown]
  - Abnormal dreams [Unknown]
  - Dizziness [Unknown]
